FAERS Safety Report 24797590 (Version 1)
Quarter: 2025Q1

REPORT INFORMATION
  Report Type: Spontaneous
  Country: US (occurrence: US)
  Receive Date: 20250102
  Receipt Date: 20250102
  Transmission Date: 20250409
  Serious: No
  Sender: ROCHE
  Company Number: US-ROCHE-10000169086

PATIENT
  Sex: Female

DRUGS (25)
  1. ACTEMRA ACTPEN [Suspect]
     Active Substance: TOCILIZUMAB
     Indication: Rheumatoid arthritis
     Dosage: DOSE 162 MG 0.9 ML
     Route: 058
  2. CLOBETASOL P 0.05% [Concomitant]
  3. CLOTRIMAZOLE CRE 1% [Concomitant]
  4. ESTRADIOL CRE 0.1MG/GM [Concomitant]
  5. QUETIAPINE F TAB 100 MG [Concomitant]
     Route: 048
  6. TRIAMCINOLON LOT 0.1% [Concomitant]
  7. VASCEPA CAP 1GM [Concomitant]
  8. ALBUTEROL SULFATE [Concomitant]
     Active Substance: ALBUTEROL SULFATE
  9. ALPRAZOLAM [Concomitant]
     Active Substance: ALPRAZOLAM
  10. AMITIZA [Concomitant]
     Active Substance: LUBIPROSTONE
  11. AZELASTINE HYDROCHLORIDE [Concomitant]
     Active Substance: AZELASTINE HYDROCHLORIDE
  12. CRESTOR [Concomitant]
     Active Substance: ROSUVASTATIN CALCIUM
  13. DICYCLOMINE HYDROCHLORIDE [Concomitant]
     Active Substance: DICYCLOMINE HYDROCHLORIDE
  14. DULOXETINE H CPE 60MG [Concomitant]
  15. GABAPENTIN TAB 600MG [Concomitant]
  16. MELOXICAM [Concomitant]
     Active Substance: MELOXICAM
  17. MONTELUKAST SODIUM [Concomitant]
     Active Substance: MONTELUKAST SODIUM
  18. OMEPRAZOLE [Concomitant]
     Active Substance: OMEPRAZOLE
  19. ONDANSETRON HYDROCHLORIDE [Concomitant]
     Active Substance: ONDANSETRON HYDROCHLORIDE
  20. QUETIAPINE FUMARATE [Concomitant]
     Active Substance: QUETIAPINE FUMARATE
  21. SYMBICORT [Concomitant]
     Active Substance: BUDESONIDE\FORMOTEROL FUMARATE DIHYDRATE
  22. TRAMADOL HCL [Concomitant]
     Active Substance: TRAMADOL HYDROCHLORIDE
  23. VITAMIN B12 [Concomitant]
     Active Substance: CYANOCOBALAMIN
  24. VITAMIN D3 [Concomitant]
     Active Substance: CHOLECALCIFEROL
  25. WELLBUTRIN SR [Concomitant]
     Active Substance: BUPROPION HYDROCHLORIDE

REACTIONS (2)
  - Gastrointestinal infection [Recovered/Resolved]
  - Product dose omission issue [Unknown]
